FAERS Safety Report 4604284-6 (Version None)
Quarter: 2005Q1

REPORT INFORMATION
  Report Type: 
  Country: None (occurrence: None)
  Receive Date: 20050308
  Receipt Date: 20050308
  Transmission Date: 20050727
  Serious: Yes (Hospitalization)
  Sender: FDA-Public Use
  Company Number: None

PATIENT
  Age: 75 Year
  Sex: Male
  Weight: 61 kg

DRUGS (8)
  1. LISINOPRIL [Suspect]
     Indication: HYPERTENSION
     Dosage: 5 MG PO QD
     Route: 048
     Dates: start: 20040823, end: 20040903
  2. COMBIVENT [Concomitant]
  3. DILTIAZEM [Concomitant]
  4. DOCUSATE [Concomitant]
  5. ISOSORBIDE DINITRATE [Concomitant]
  6. METOPROLOL TARTRATE [Concomitant]
  7. RANITIDINE [Concomitant]
  8. SIMVASTATIN [Concomitant]

REACTIONS (2)
  - JAW DISORDER [None]
  - SWELLING [None]
